FAERS Safety Report 21830483 (Version 1)
Quarter: 2023Q1

REPORT INFORMATION
  Report Type: Spontaneous
  Country: IN (occurrence: IN)
  Receive Date: 20230106
  Receipt Date: 20230106
  Transmission Date: 20230417
  Serious: Yes (Other)
  Sender: FDA-Public Use
  Company Number: IN-MYLANLABS-2022M1141118

PATIENT
  Age: 60 Year
  Sex: Male

DRUGS (4)
  1. FLUOROURACIL [Suspect]
     Active Substance: FLUOROURACIL
     Indication: Rectal adenocarcinoma
     Dosage: 2400 MILLIGRAM/SQ. METER, CYCLE (FLUOROURACIL [5-FLUOROURACIL] INFUSION 2400 MG/M 2 OVER 48 HOURS; F
     Route: 042
  2. FLUOROURACIL [Suspect]
     Active Substance: FLUOROURACIL
     Indication: Metastases to lung
  3. OXALIPLATIN [Concomitant]
     Active Substance: OXALIPLATIN
     Indication: Rectal adenocarcinoma
     Dosage: 85 MILLIGRAM/SQ. METER, CYCLE (FOLFIRINOX REGIMEN)
     Route: 065
  4. IRINOTECAN [Concomitant]
     Active Substance: IRINOTECAN
     Indication: Rectal adenocarcinoma
     Dosage: 150 MILLIGRAM/SQ. METER, CYCLE (FOLFIRINOX REGIMEN)
     Route: 065

REACTIONS (1)
  - Toxic leukoencephalopathy [Recovered/Resolved]
